FAERS Safety Report 5031282-3 (Version None)
Quarter: 2006Q2

REPORT INFORMATION
  Report Type: 
  Country: None (occurrence: None)
  Receive Date: 20060619
  Receipt Date: 20060619
  Transmission Date: 20061013
  Serious: Yes (Death, Life-Threatening, Hospitalization)
  Sender: FDA-Public Use
  Company Number: None

PATIENT
  Age: 67 Year
  Sex: Male
  Weight: 69 kg

DRUGS (1)
  1. ERLOTINIB  150 MG [Suspect]
     Indication: LUNG NEOPLASM MALIGNANT
     Dosage: 150 MG DAILY PO
     Route: 048
     Dates: start: 20060604, end: 20060610

REACTIONS (4)
  - DYSPNOEA [None]
  - EFFUSION [None]
  - LUNG INFILTRATION [None]
  - PNEUMONITIS [None]
